FAERS Safety Report 25957469 (Version 1)
Quarter: 2025Q4

REPORT INFORMATION
  Report Type: Spontaneous
  Country: AU (occurrence: AU)
  Receive Date: 20251024
  Receipt Date: 20251024
  Transmission Date: 20260117
  Serious: Yes (Life-Threatening, Hospitalization, Other)
  Sender: SANDOZ
  Company Number: None

PATIENT
  Age: 17 Year
  Sex: Female
  Weight: 53 kg

DRUGS (2)
  1. FLUOXETINE [Suspect]
     Active Substance: FLUOXETINE HYDROCHLORIDE
     Indication: Product used for unknown indication
     Dosage: 80 MG
     Route: 065
  2. HYDROXYCHLOROQUINE [Suspect]
     Active Substance: HYDROXYCHLOROQUINE
     Indication: Product used for unknown indication
     Dosage: 4 G
     Route: 065

REACTIONS (4)
  - Atrioventricular block complete [Unknown]
  - Electrocardiogram QRS complex prolonged [Unknown]
  - Ventricular tachycardia [Unknown]
  - Toxicity to various agents [Unknown]
